APPROVED DRUG PRODUCT: VIRACEPT
Active Ingredient: NELFINAVIR MESYLATE
Strength: EQ 250MG BASE
Dosage Form/Route: TABLET;ORAL
Application: N020779 | Product #001
Applicant: AGOURON PHARMACEUTICALS LLC
Approved: Mar 14, 1997 | RLD: Yes | RS: Yes | Type: RX